FAERS Safety Report 18471862 (Version 7)
Quarter: 2021Q3

REPORT INFORMATION
  Report Type: Report from Study
  Country: US (occurrence: US)
  Receive Date: 20201106
  Receipt Date: 20210903
  Transmission Date: 20211014
  Serious: Yes (Hospitalization)
  Sender: FDA-Public Use
  Company Number: US-EMD SERONO-9195584

PATIENT
  Age: 58 Year
  Sex: Female

DRUGS (3)
  1. MAVENCLAD [Suspect]
     Active Substance: CLADRIBINE
     Dosage: YEAR ONE MONTH TWO THERAPY (INTERRUPTED) : TOOK 20MG ON 24 OCT 2020 AT 6:30 PM.
     Route: 048
     Dates: start: 20201024, end: 20201024
  2. MAVENCLAD [Suspect]
     Active Substance: CLADRIBINE
     Indication: MULTIPLE SCLEROSIS
     Dosage: YEAR ONE MONTH ONE THERAPY
     Route: 048
     Dates: start: 20200924
  3. MAVENCLAD [Suspect]
     Active Substance: CLADRIBINE
     Dosage: YEAR ONE MONTH TWO THERAPY (RESTARTED)
     Route: 048
     Dates: start: 20201219, end: 20201222

REACTIONS (4)
  - Multiple sclerosis relapse [Not Recovered/Not Resolved]
  - Herpes zoster [Recovering/Resolving]
  - Infection [Not Recovered/Not Resolved]
  - Infusion site bruising [Not Recovered/Not Resolved]

NARRATIVE: CASE EVENT DATE: 202010
